FAERS Safety Report 4829315-X (Version None)
Quarter: 2005Q4

REPORT INFORMATION
  Report Type: 
  Country: None (occurrence: None)
  Receive Date: 20051028
  Receipt Date: 20050907
  Transmission Date: 20060501
  Serious: Yes (Hospitalization, Other)
  Sender: FDA-Public Use
  Company Number: USA040978710

PATIENT
  Age: 9 Year
  Sex: Male

DRUGS (3)
  1. SYMBYAX [Suspect]
     Indication: AFFECTIVE DISORDER
  2. CLONIDINE [Concomitant]
  3. CONCERTA [Concomitant]

REACTIONS (3)
  - ACCIDENTAL OVERDOSE [None]
  - CONVULSION [None]
  - SINUSITIS [None]
